FAERS Safety Report 15472897 (Version 1)
Quarter: 2018Q4

REPORT INFORMATION
  Report Type: Spontaneous
  Country: US (occurrence: US)
  Receive Date: 20181008
  Receipt Date: 20181008
  Transmission Date: 20190205
  Serious: Yes (Other)
  Sender: FDA-Public Use
  Company Number: US-PFIZER INC-2018397304

PATIENT
  Age: 76 Year
  Sex: Female
  Weight: 73.92 kg

DRUGS (7)
  1. ULTRAM [TRAMADOL HYDROCHLORIDE] [Concomitant]
     Indication: PAIN
     Dosage: 1 TO 2 TABLETS, THRICE DAILY
  2. LYRICA [Suspect]
     Active Substance: PREGABALIN
     Indication: FIBROMYALGIA
     Dosage: UNK, ONCE DAILY
     Route: 048
     Dates: start: 2018, end: 2018
  3. LYRICA [Suspect]
     Active Substance: PREGABALIN
     Indication: PAIN
     Dosage: 75 MG, TWICE DAILY
     Route: 048
     Dates: start: 20180924
  4. METFORMIN [Concomitant]
     Active Substance: METFORMIN HYDROCHLORIDE
     Indication: DIABETES MELLITUS
     Dosage: 500 MG, DAILY
     Dates: start: 2012
  5. ULTRAM [TRAMADOL HYDROCHLORIDE] [Concomitant]
     Dosage: 50 MG, FOUR TIMES DAILY
  6. LYRICA [Suspect]
     Active Substance: PREGABALIN
     Indication: ARTHRITIS
     Dosage: UNK, TWICE DAILY
     Route: 048
     Dates: start: 201808, end: 2018
  7. CELEBREX [Concomitant]
     Active Substance: CELECOXIB
     Indication: PAIN
     Dosage: 200 MG, DAILY
     Dates: start: 2012

REACTIONS (7)
  - Dizziness [Recovered/Resolved]
  - Weight increased [Not Recovered/Not Resolved]
  - Abdominal distension [Unknown]
  - Intentional product misuse [Unknown]
  - Suicidal ideation [Unknown]
  - Therapeutic response unexpected [Unknown]
  - Pre-existing condition improved [Unknown]

NARRATIVE: CASE EVENT DATE: 2018
